FAERS Safety Report 10145903 (Version 2)
Quarter: 2014Q2

REPORT INFORMATION
  Report Type: Spontaneous
  Country: US (occurrence: US)
  Receive Date: 20140501
  Receipt Date: 20140501
  Transmission Date: 20141212
  Serious: No
  Sender: FDA-Public Use
  Company Number: US-ABBVIE-12P-163-0994842-00

PATIENT
  Sex: Female
  Weight: 51.76 kg

DRUGS (5)
  1. CREON [Suspect]
     Indication: PANCREATIC INSUFFICIENCY
     Dosage: ONE CAPSULE WITH EACH MEAL
     Dates: start: 201204, end: 201304
  2. BETAPACE [Concomitant]
     Indication: ATRIAL FIBRILLATION
  3. NEXIUM [Concomitant]
     Indication: GASTROOESOPHAGEAL REFLUX DISEASE
  4. CYMBALTA [Concomitant]
     Indication: MENTAL DISORDER
  5. OXYCODONE [Concomitant]
     Indication: PAIN

REACTIONS (4)
  - Constipation [Not Recovered/Not Resolved]
  - Constipation [Not Recovered/Not Resolved]
  - Abnormal faeces [Not Recovered/Not Resolved]
  - Anorectal discomfort [Not Recovered/Not Resolved]
